FAERS Safety Report 19925562 (Version 2)
Quarter: 2022Q4

REPORT INFORMATION
  Report Type: Report from Study
  Country: US (occurrence: US)
  Receive Date: 20211006
  Receipt Date: 20221025
  Transmission Date: 20230112
  Serious: No
  Sender: FDA-Public Use
  Company Number: US-IPSEN BIOPHARMACEUTICALS, INC.-2021-23939

PATIENT
  Age: 55 Year
  Sex: Female

DRUGS (1)
  1. SOMATULINE DEPOT [Suspect]
     Active Substance: LANREOTIDE ACETATE
     Indication: Acromegaly
     Dosage: 90MG/ 0.5ML, EVERY FOUR WEEKS, DEEP SUBCUTANEOUS
     Route: 058
     Dates: start: 202003

REACTIONS (4)
  - Blood pressure abnormal [Not Recovered/Not Resolved]
  - Injection site haemorrhage [Recovered/Resolved]
  - Self-medication [Unknown]
  - Lack of administration site rotation [Unknown]

NARRATIVE: CASE EVENT DATE: 20200301
